FAERS Safety Report 12862673 (Version 1)
Quarter: 2016Q4

REPORT INFORMATION
  Report Type: Spontaneous
  Country: US (occurrence: US)
  Receive Date: 20161019
  Receipt Date: 20161019
  Transmission Date: 20170207
  Serious: Yes (Other)
  Sender: FDA-Public Use
  Company Number: US-DEPOMED, INC.-US-2016DEP012473

PATIENT

DRUGS (9)
  1. CYMBALTA [Concomitant]
     Active Substance: DULOXETINE HYDROCHLORIDE
     Indication: MYALGIA
     Dosage: 30 MG, QD
     Route: 048
     Dates: start: 201201
  2. CELLCEPT [Concomitant]
     Active Substance: MYCOPHENOLATE MOFETIL\MYCOPHENOLATE MOFETIL HYDROCHLORIDE
     Indication: IMMUNOSUPPRESSANT DRUG THERAPY
     Dosage: 750 MG, BID
     Route: 048
     Dates: start: 2015, end: 2016
  3. AMBIEN [Concomitant]
     Active Substance: ZOLPIDEM TARTRATE
     Indication: SLEEP DISORDER
     Dosage: 5-10MG AT BEDTIME
     Route: 048
     Dates: start: 201201
  4. GRALISE [Suspect]
     Active Substance: GABAPENTIN
     Dosage: 1200 MG, QD WITH EVENING MEAL
     Route: 048
     Dates: start: 2015
  5. CYMBALTA [Concomitant]
     Active Substance: DULOXETINE HYDROCHLORIDE
     Indication: PAIN IN EXTREMITY
  6. GRALISE [Suspect]
     Active Substance: GABAPENTIN
     Indication: DEMYELINATING POLYNEUROPATHY
     Dosage: 1800 MG, QD WITH EVENING MEAL
     Route: 048
     Dates: start: 2015, end: 2015
  7. ZYRTEC [Concomitant]
     Active Substance: CETIRIZINE HYDROCHLORIDE
     Indication: HYPERSENSITIVITY
     Dosage: 10 MG, QD AT BEDTIME
     Route: 048
     Dates: start: 201201
  8. PRILOSEC [Concomitant]
     Active Substance: OMEPRAZOLE MAGNESIUM
     Indication: GASTROOESOPHAGEAL REFLUX DISEASE
     Dosage: 40 MG, QD IN THE MORNING
     Route: 048
     Dates: start: 201201
  9. IMMUNOGLOBULIN                     /00025201/ [Concomitant]
     Active Substance: HUMAN IMMUNOGLOBULIN G
     Indication: DEMYELINATING POLYNEUROPATHY
     Dosage: 150 G, EVERY 3 WEEKS OVER A 6 HOUR PERIOD
     Route: 042
     Dates: start: 2016

REACTIONS (8)
  - Nerve injury [Unknown]
  - Gastric disorder [Unknown]
  - Activities of daily living impaired [Not Recovered/Not Resolved]
  - Spinal cord disorder [Not Recovered/Not Resolved]
  - Diarrhoea [Unknown]
  - Product use issue [Not Recovered/Not Resolved]
  - Asthenia [Not Recovered/Not Resolved]
  - Drug titration error [Not Recovered/Not Resolved]

NARRATIVE: CASE EVENT DATE: 2015
